FAERS Safety Report 10243342 (Version 3)
Quarter: 2014Q2

REPORT INFORMATION
  Report Type: Report from Study
  Country: IL (occurrence: IL)
  Receive Date: 20140618
  Receipt Date: 20140620
  Transmission Date: 20141212
  Serious: Yes (Hospitalization, Other)
  Sender: FDA-Public Use
  Company Number: PHHY2013IL149408

PATIENT
  Sex: Female

DRUGS (1)
  1. GILENYA [Suspect]
     Indication: MULTIPLE SCLEROSIS
     Dosage: 0.5 MG, QD
     Route: 048
     Dates: start: 20130221

REACTIONS (7)
  - Oesophageal perforation [Recovering/Resolving]
  - Abdominal infection [Recovering/Resolving]
  - Incision site pain [Recovering/Resolving]
  - Procedural site reaction [Recovering/Resolving]
  - Oesophageal stenosis [Recovering/Resolving]
  - Vomiting [Recovering/Resolving]
  - Obesity [Recovering/Resolving]
